FAERS Safety Report 20440062 (Version 1)
Quarter: 2022Q1

REPORT INFORMATION
  Report Type: Spontaneous
  Country: US (occurrence: None)
  Receive Date: 20220205
  Receipt Date: 20220205
  Transmission Date: 20220423
  Serious: No
  Sender: FDA-Public Use
  Company Number: None

PATIENT
  Age: 52 Year
  Sex: Female
  Weight: 60.75 kg

DRUGS (9)
  1. SLYND [Suspect]
     Active Substance: DROSPIRENONE
     Indication: Uterine cyst
     Dosage: OTHER QUANTITY : 1 TABLET(S);?
     Route: 048
  2. SLYND [Suspect]
     Active Substance: DROSPIRENONE
     Indication: Dysmenorrhoea
  3. IBUPROFEN [Concomitant]
     Active Substance: IBUPROFEN
  4. OMEPRAZOLE [Concomitant]
     Active Substance: OMEPRAZOLE
  5. FLUTICASONE [Concomitant]
     Active Substance: FLUTICASONE
  6. MULTIVITAMIN (PRIMAL HARVEST) [Concomitant]
  7. IRON [Concomitant]
     Active Substance: IRON
  8. COENZYME Q10 [Concomitant]
     Active Substance: DIETARY SUPPLEMENT\UBIDECARENONE
  9. GUT RESTORE (PRIMAL HARVEST) [Concomitant]

REACTIONS (2)
  - Heavy menstrual bleeding [None]
  - Condition aggravated [None]

NARRATIVE: CASE EVENT DATE: 20220116
